FAERS Safety Report 18875765 (Version 1)
Quarter: 2021Q1

REPORT INFORMATION
  Report Type: Spontaneous
  Country: US (occurrence: US)
  Receive Date: 20210210
  Receipt Date: 20210210
  Transmission Date: 20210420
  Serious: No
  Sender: FDA-Public Use
  Company Number: US-BRECKENRIDGE PHARMACEUTICAL, INC.-2106589

PATIENT
  Age: 59 Year
  Sex: Male
  Weight: 81.45 kg

DRUGS (8)
  1. DIVALPROEX SODIUM ER [Concomitant]
     Active Substance: DIVALPROEX SODIUM
  2. SINGULAIR [Concomitant]
     Active Substance: MONTELUKAST SODIUM
  3. GEMFIBROZIL. [Concomitant]
     Active Substance: GEMFIBROZIL
  4. CLONAZEPAM. [Concomitant]
     Active Substance: CLONAZEPAM
  5. TEGRETOL [Concomitant]
     Active Substance: CARBAMAZEPINE
  6. VITAMIN D [Concomitant]
     Active Substance: VITAMIN D NOS
  7. FISH OIL [Concomitant]
     Active Substance: FISH OIL
  8. OXCARBAZEPINE. [Suspect]
     Active Substance: OXCARBAZEPINE
     Route: 048

REACTIONS (4)
  - Hyperhidrosis [None]
  - Pollakiuria [None]
  - Burning sensation [None]
  - Cough [None]
